FAERS Safety Report 7435100-5 (Version None)
Quarter: 2011Q2

REPORT INFORMATION
  Report Type: 
  Country: None (occurrence: None)
  Receive Date: 20110425
  Receipt Date: 20110418
  Transmission Date: 20111010
  Serious: Yes (Death)
  Sender: FDA-Public Use
  Company Number: PHHY2011CA16971

PATIENT
  Sex: Male

DRUGS (4)
  1. SERTRALINE [Concomitant]
     Indication: ANXIOLYTIC THERAPY
     Dosage: 50 MG, MORNING AND NIGHT
  2. CLOZARIL [Suspect]
     Indication: HUNTINGTON'S DISEASE
     Dosage: UNK
     Dates: start: 20071010
  3. CLOZARIL [Suspect]
     Dosage: 100 MG, DAILY
     Route: 048
  4. CLOZARIL [Suspect]
     Dosage: 50 MG, DAILY
     Route: 048

REACTIONS (1)
  - HUNTINGTON'S DISEASE [None]
